FAERS Safety Report 18964622 (Version 5)
Quarter: 2021Q3

REPORT INFORMATION
  Report Type: Spontaneous
  Country: JP (occurrence: JP)
  Receive Date: 20210303
  Receipt Date: 20210827
  Transmission Date: 20211014
  Serious: Yes (Death, Hospitalization, Other)
  Sender: FDA-Public Use
  Company Number: JP-DSJP-DSJ-2021-106201

PATIENT
  Age: 76 Year
  Sex: Male
  Weight: 62 kg

DRUGS (16)
  1. TENELIA [Concomitant]
     Active Substance: TENELIGLIPTIN
     Dosage: 20MG/BODY, QD
     Route: 048
     Dates: end: 20210226
  2. ALOXI [Concomitant]
     Active Substance: PALONOSETRON HYDROCHLORIDE
     Dosage: UNK
     Route: 065
  3. METFORMIN [Concomitant]
     Active Substance: METFORMIN HYDROCHLORIDE
     Dosage: 250MG/BODY, BID
     Route: 048
     Dates: end: 20210226
  4. NAIXAN                             /00256201/ [Concomitant]
     Active Substance: NAPROXEN
     Dosage: 200MG/BODY, TID
     Route: 048
     Dates: start: 20210203, end: 20210226
  5. DECADRON [Concomitant]
     Active Substance: DEXAMETHASONE
     Dosage: UNK
     Route: 065
  6. LOPERAMIDE                         /00384302/ [Concomitant]
     Active Substance: LOPERAMIDE HYDROCHLORIDE
     Dosage: UNK
     Route: 065
  7. ZOLPIDEM [Concomitant]
     Active Substance: ZOLPIDEM TARTRATE
     Dosage: 5MG/BODY, QD
     Route: 048
     Dates: end: 20210226
  8. ALPRAZOLAM. [Concomitant]
     Active Substance: ALPRAZOLAM
     Dosage: UNK
     Route: 065
  9. PRAVASTATIN. [Concomitant]
     Active Substance: PRAVASTATIN
     Dosage: 10MG/BODY, QD
     Route: 048
     Dates: end: 20210226
  10. NOVAMIN                            /00013304/ [Concomitant]
     Active Substance: PROCHLORPERAZINE MALEATE
     Dosage: UNK
     Route: 065
  11. DEXART [Concomitant]
     Active Substance: DEXAMETHASONE SODIUM PHOSPHATE
     Dosage: UNK
     Route: 065
  12. NEXIUM [Concomitant]
     Active Substance: ESOMEPRAZOLE MAGNESIUM
     Dosage: 20MG/BODY, QD
     Route: 048
     Dates: end: 20210226
  13. ENEVO [Concomitant]
     Dosage: UNK
     Route: 065
  14. ENHERTU [Suspect]
     Active Substance: FAM-TRASTUZUMAB DERUXTECAN-NXKI
     Indication: HER2 POSITIVE GASTRIC CANCER
     Dosage: 430 MG, ONCE EVERY 3 WK
     Route: 041
     Dates: start: 20210216, end: 20210216
  15. AMLODIPINE                         /00972402/ [Concomitant]
     Active Substance: AMLODIPINE BESYLATE
     Dosage: 7.5MG/BODY, QD
     Route: 048
     Dates: end: 20210226
  16. LYRICA [Concomitant]
     Active Substance: PREGABALIN
     Dosage: 75MG/BODY, BID
     Route: 048
     Dates: end: 20210226

REACTIONS (4)
  - Myelosuppression [Not Recovered/Not Resolved]
  - Septic shock [Fatal]
  - Peritonitis [Fatal]
  - Gastrointestinal necrosis [Fatal]

NARRATIVE: CASE EVENT DATE: 20210226
